FAERS Safety Report 22084880 (Version 1)
Quarter: 2023Q1

REPORT INFORMATION
  Report Type: Spontaneous
  Country: CN (occurrence: CN)
  Receive Date: 20230310
  Receipt Date: 20230310
  Transmission Date: 20230417
  Serious: Yes (Hospitalization)
  Sender: FDA-Public Use
  Company Number: CN-PFIZER INC-PV202300045512

PATIENT
  Age: 63 Year
  Sex: Female
  Weight: 50 kg

DRUGS (8)
  1. CYTARABINE [Suspect]
     Active Substance: CYTARABINE
     Indication: Acute myeloid leukaemia
     Dosage: 0.5 G, 1X/DAY
     Route: 037
     Dates: start: 20220721, end: 20220721
  2. CYTARABINE [Suspect]
     Active Substance: CYTARABINE
     Dosage: 0.15 G, 2X/DAY
     Route: 041
     Dates: start: 20220722, end: 20220728
  3. METHOTREXATE SODIUM [Suspect]
     Active Substance: METHOTREXATE SODIUM
     Indication: Acute myeloid leukaemia
     Dosage: 5 ML, 1X/DAY
     Route: 037
     Dates: start: 20220721, end: 20220721
  4. IDARUBICIN HYDROCHLORIDE [Suspect]
     Active Substance: IDARUBICIN HYDROCHLORIDE
     Indication: Acute myeloid leukaemia
     Dosage: 10 MG, 1X/DAY
     Route: 042
     Dates: start: 20220722, end: 20220724
  5. SODIUM CHLORIDE [Concomitant]
     Active Substance: SODIUM CHLORIDE
     Indication: Vehicle solution use
     Dosage: 100 ML, 1X/DAY
     Route: 037
     Dates: start: 20220721, end: 20220721
  6. SODIUM CHLORIDE [Concomitant]
     Active Substance: SODIUM CHLORIDE
     Dosage: 10 ML, 1X/DAY
     Route: 037
     Dates: start: 20220721, end: 20220721
  7. SODIUM CHLORIDE [Concomitant]
     Active Substance: SODIUM CHLORIDE
     Dosage: 40 ML, 1X/DAY
     Route: 042
     Dates: start: 20220722, end: 20220724
  8. SODIUM CHLORIDE [Concomitant]
     Active Substance: SODIUM CHLORIDE
     Dosage: 100 ML, 2X/DAY
     Route: 041
     Dates: start: 20220722, end: 20220728

REACTIONS (1)
  - Full blood count decreased [Recovering/Resolving]

NARRATIVE: CASE EVENT DATE: 20220803
